FAERS Safety Report 23800516 (Version 4)
Quarter: 2024Q3

REPORT INFORMATION
  Report Type: Report from Study
  Country: DE (occurrence: DE)
  Receive Date: 20240430
  Receipt Date: 20240812
  Transmission Date: 20241016
  Serious: Yes (Other)
  Sender: JOHNSON AND JOHNSON
  Company Number: DE-JNJFOC-20240476067

PATIENT
  Age: 28 Year
  Sex: Female

DRUGS (2)
  1. SPRAVATO [Suspect]
     Active Substance: ESKETAMINE
     Indication: Depression
     Dosage: 56 MG (2 DEVICES)
     Dates: start: 20240416, end: 20240416
  2. SPRAVATO [Suspect]
     Active Substance: ESKETAMINE
     Dosage: 84 MG (3 DEVICES) (14 DOSES) (18-APR-2024, 23-APR-2024, 25-APR-2024, 30-APR-2024, 03-MAY-2024, 07-MA
     Dates: start: 20240418, end: 20240806

REACTIONS (2)
  - Suicidal ideation [Recovered/Resolved]
  - Blood pressure increased [Recovered/Resolved]

NARRATIVE: CASE EVENT DATE: 20240422
